FAERS Safety Report 8475706-8 (Version None)
Quarter: 2012Q2

REPORT INFORMATION
  Report Type: 
  Country: None (occurrence: None)
  Receive Date: 20120628
  Receipt Date: 20120619
  Transmission Date: 20120825
  Serious: Yes (Other)
  Sender: FDA-Public Use
  Company Number: US-GLAXOSMITHKLINE-A0982183A

PATIENT
  Age: 56 Year
  Sex: Female
  Weight: 75.9 kg

DRUGS (3)
  1. METFORMIN HCL [Concomitant]
  2. LISINOPRIL [Concomitant]
     Indication: HYPERTENSION
  3. WELLBUTRIN [Suspect]
     Indication: DEPRESSION
     Route: 065

REACTIONS (6)
  - DIZZINESS [None]
  - DRUG INEFFECTIVE [None]
  - HALLUCINATION [None]
  - NAUSEA [None]
  - SUICIDAL IDEATION [None]
  - COGNITIVE DISORDER [None]
